FAERS Safety Report 22895038 (Version 4)
Quarter: 2024Q1

REPORT INFORMATION
  Report Type: Report from Study
  Country: GB (occurrence: GB)
  Receive Date: 20230901
  Receipt Date: 20240117
  Transmission Date: 20240410
  Serious: Yes (Other)
  Sender: FDA-Public Use
  Company Number: GB-TAKEDA-2022TUS091065

PATIENT
  Sex: Male

DRUGS (1)
  1. VEDOLIZUMAB [Suspect]
     Active Substance: VEDOLIZUMAB
     Indication: Colitis ulcerative
     Dosage: 108 MILLIGRAM, Q2WEEKS
     Route: 058

REACTIONS (7)
  - Haematochezia [Unknown]
  - Lower respiratory tract infection [Unknown]
  - Memory impairment [Unknown]
  - Swelling [Unknown]
  - Haemoptysis [Unknown]
  - Malaise [Unknown]
  - Cough [Unknown]
